FAERS Safety Report 8607734-3 (Version None)
Quarter: 2012Q3

REPORT INFORMATION
  Report Type: 
  Country: None (occurrence: None)
  Receive Date: 20120821
  Receipt Date: 20120813
  Transmission Date: 20120928
  Serious: Yes (Hospitalization)
  Sender: FDA-Public Use
  Company Number: DE-PFIZER INC-2012199618

PATIENT
  Sex: Male
  Weight: 114.8 kg

DRUGS (11)
  1. HYDROCORTISONE [Concomitant]
     Indication: BLOOD CORTICOTROPHIN DECREASED
     Dosage: UNK
     Dates: start: 20040701
  2. RESTEX [Concomitant]
     Indication: URETERAL DISORDER
  3. LEVOTHYROXINE SODIUM [Concomitant]
     Indication: BLOOD THYROID STIMULATING HORMONE DECREASED
     Dosage: UNK
     Dates: start: 20020920
  4. RESTEX [Concomitant]
     Indication: RENAL DISORDER
     Dosage: UNK
     Dates: start: 20080101
  5. GENOTROPIN [Suspect]
     Dosage: 0.7 MG, 7/WK
     Route: 058
     Dates: start: 20060317
  6. DESMOPRESSIN ACETATE [Concomitant]
     Indication: BLOOD ANTIDIURETIC HORMONE DECREASED
     Dosage: UNK
     Dates: start: 20020920
  7. DESMOPRESSIN ACETATE [Concomitant]
     Indication: BLOOD ANTIDIURETIC HORMONE DECREASED
     Dosage: UNK
     Dates: start: 19960315
  8. ALLOPURINOL [Concomitant]
     Indication: BLOOD TEST ABNORMAL
     Dosage: UNK
     Dates: start: 20030701
  9. NEBIDO [Concomitant]
  10. DIOVAN [Concomitant]
     Indication: ESSENTIAL HYPERTENSION
     Dosage: UNK
     Dates: start: 20030701
  11. SIMVASTATIN [Concomitant]
     Indication: HYPERLIPIDAEMIA
     Dosage: UNK
     Dates: start: 20040505

REACTIONS (1)
  - ARTHROPATHY [None]
